FAERS Safety Report 25234150 (Version 2)
Quarter: 2025Q2

REPORT INFORMATION
  Report Type: Spontaneous
  Country: US (occurrence: US)
  Receive Date: 20250424
  Receipt Date: 20250430
  Transmission Date: 20250717
  Serious: Yes (Other)
  Sender: MYLAN
  Company Number: US-MYLANLABS-2025M1033761

PATIENT
  Sex: Female
  Weight: 74.84 kg

DRUGS (2)
  1. ALPRAZOLAM [Suspect]
     Active Substance: ALPRAZOLAM
     Indication: Nervous system disorder
  2. CLONAZEPAM [Concomitant]
     Active Substance: CLONAZEPAM
     Indication: Product used for unknown indication
     Dosage: UNK, QID (4 TIMES A DAY, MOSTLY IN EVENINGS)
     Dates: start: 2005

REACTIONS (4)
  - Rheumatoid arthritis [Unknown]
  - Body height decreased [Unknown]
  - Abdominal discomfort [Unknown]
  - Off label use [Unknown]
